FAERS Safety Report 5843538-2 (Version None)
Quarter: 2008Q3

REPORT INFORMATION
  Report Type: 
  Country: None (occurrence: None)
  Receive Date: 20080808
  Receipt Date: 20080730
  Transmission Date: 20090109
  Serious: Yes (Disabling)
  Sender: FDA-Public Use
  Company Number: OSCN-NO-0808L-0476

PATIENT
  Age: 64 Year
  Sex: Male

DRUGS (2)
  1. OMNISCAN [Suspect]
     Indication: ANGIOPATHY
     Dosage: SINGLE DOSE, I.V.
     Route: 042
  2. EPOGEN [Concomitant]

REACTIONS (1)
  - NEPHROGENIC SYSTEMIC FIBROSIS [None]
